FAERS Safety Report 8834427 (Version 1)
Quarter: 2012Q4

REPORT INFORMATION
  Report Type: Spontaneous
  Country: US (occurrence: None)
  Receive Date: 20121010
  Receipt Date: 20121010
  Transmission Date: 20130627
  Serious: Yes (Other)
  Sender: FDA-Public Use
  Company Number: None

PATIENT
  Age: 53 Year
  Sex: Female
  Weight: 62.1 kg

DRUGS (1)
  1. SOLU-CORTEF [Suspect]
     Indication: CONGENITAL ADRENAL HYPERPLASIA
     Dosage: continuous
     Route: 058
     Dates: start: 20120801

REACTIONS (3)
  - Pruritus [None]
  - Erythema [None]
  - Product quality issue [None]
